FAERS Safety Report 9058870 (Version 1)
Quarter: 2013Q1

REPORT INFORMATION
  Report Type: Spontaneous
  Country: JP (occurrence: JP)
  Receive Date: 20130211
  Receipt Date: 20130211
  Transmission Date: 20140127
  Serious: Yes (Other)
  Sender: FDA-Public Use
  Company Number: JP-PFIZER INC-2013039178

PATIENT
  Age: 48 Year
  Sex: Male

DRUGS (6)
  1. NORVASC [Suspect]
     Dosage: UNK
     Route: 048
     Dates: start: 201005
  2. URALYT [Concomitant]
     Dosage: UNK
     Route: 048
  3. URINORM [Concomitant]
     Dosage: UNK
     Route: 048
  4. TRICOR [Concomitant]
     Dosage: UNK
     Route: 048
  5. ACECOL [Concomitant]
     Dosage: UNK
     Route: 048
  6. HALCION [Concomitant]
     Dosage: UNK
     Route: 048

REACTIONS (1)
  - Haemorrhage subcutaneous [Unknown]
